FAERS Safety Report 10902691 (Version 3)
Quarter: 2015Q3

REPORT INFORMATION
  Report Type: Spontaneous
  Country: CH (occurrence: CH)
  Receive Date: 20150310
  Receipt Date: 20150806
  Transmission Date: 20151125
  Serious: Yes (Hospitalization)
  Sender: FDA-Public Use
  Company Number: CH-009507513-1503CHE002458

PATIENT
  Age: 82 Year
  Sex: Female

DRUGS (6)
  1. PANTOPRAZOLE SODIUM. [Concomitant]
     Active Substance: PANTOPRAZOLE SODIUM
     Dosage: UNK
  2. KLACID (CLARITHROMYCIN LACTOBIONATE) [Suspect]
     Active Substance: CLARITHROMYCIN
     Indication: PNEUMONIA
     Dosage: TOTAL DAILY DOSE: 500MG, BID
     Route: 048
     Dates: start: 20150101, end: 20150116
  3. INEGY [Suspect]
     Active Substance: EZETIMIBE\SIMVASTATIN
     Dosage: 40MG/10MG, ONCE DAILY
     Route: 048
     Dates: start: 2003, end: 20150116
  4. CONCOR [Concomitant]
     Active Substance: BISOPROLOL FUMARATE
     Dosage: UNK
  5. ASPIRIN CARDIO [Concomitant]
     Active Substance: ASPIRIN
     Dosage: UNK
  6. NEO-CODION (CODEINE CAMSYLATE (+) GRINDELIA (+) POTASSIUM GUAIACOLSULF [Concomitant]
     Dosage: UNK

REACTIONS (2)
  - Rhabdomyolysis [Unknown]
  - Medication error [Recovered/Resolved]

NARRATIVE: CASE EVENT DATE: 20150101
